FAERS Safety Report 9989956 (Version 1)
Quarter: 2014Q1

REPORT INFORMATION
  Report Type: Report from Study
  Country: US (occurrence: US)
  Receive Date: 20140310
  Receipt Date: 20140310
  Transmission Date: 20141002
  Serious: No
  Sender: FDA-Public Use
  Company Number: US-ABBVIE-13P-163-1132670-00

PATIENT
  Age: 55 Year
  Sex: Male

DRUGS (3)
  1. HUMIRA [Suspect]
     Indication: PSORIATIC ARTHROPATHY
     Dates: start: 201301, end: 201308
  2. HYDROCODONE [Concomitant]
     Indication: PAIN
     Dosage: AS NEEDED
  3. TEMAZEPAM [Concomitant]
     Indication: SLEEP DISORDER THERAPY
     Dosage: AT HOUR OF SLEEP, MAY TAKE 3 TIMES A WEEK

REACTIONS (3)
  - Drug dose omission [Recovered/Resolved]
  - Rash macular [Recovered/Resolved]
  - Rash macular [Recovered/Resolved]
